FAERS Safety Report 5309698-7 (Version None)
Quarter: 2007Q2

REPORT INFORMATION
  Report Type: 
  Country: None (occurrence: None)
  Receive Date: 20070427
  Receipt Date: 20070418
  Transmission Date: 20071010
  Serious: Yes (Hospitalization)
  Sender: FDA-Public Use
  Company Number: JP-ROCHE-487882

PATIENT
  Age: 41 Year
  Sex: Female
  Weight: 49 kg

DRUGS (3)
  1. TAMIFLU [Suspect]
     Route: 048
     Dates: start: 20070308, end: 20070308
  2. TAMIFLU [Suspect]
     Route: 048
     Dates: start: 20070309, end: 20070309
  3. ACETAMINOPHEN [Concomitant]
     Route: 048
     Dates: start: 20070308, end: 20070308

REACTIONS (1)
  - COLITIS ISCHAEMIC [None]
